FAERS Safety Report 8988142 (Version 1)
Quarter: 2012Q4

REPORT INFORMATION
  Report Type: 
  Country: JP (occurrence: JP)
  Receive Date: 20121227
  Receipt Date: 20121227
  Transmission Date: 20130627
  Serious: Yes (Hospitalization, Other)
  Sender: FDA-Public Use
  Company Number: JP-ROCHE-1173766

PATIENT
  Age: 13 Year
  Sex: Male

DRUGS (8)
  1. MIDAZOLAM HYDROCHLORIDE [Suspect]
     Indication: TREMOR
     Route: 041
  2. DIAZEPAM [Suspect]
     Indication: TREMOR
     Route: 042
  3. PHENOBARBITAL [Suspect]
     Indication: EPILEPSY
     Route: 041
  4. LEVETIRACETAM [Suspect]
     Indication: EPILEPSY
     Dosage: 1 regimen
     Route: 048
  5. LEVETIRACETAM [Suspect]
     Dosage: 2 regimen
     Route: 048
  6. LEVETIRACETAM [Suspect]
     Dosage: 3 regimen
     Route: 048
  7. CARBAMAZEPINE [Concomitant]
     Route: 048
  8. SODIUM VALPROATE [Concomitant]
     Route: 048

REACTIONS (3)
  - Tremor [Unknown]
  - Dissociative identity disorder [Unknown]
  - Drug ineffective for unapproved indication [Unknown]
